FAERS Safety Report 9172281 (Version 1)
Quarter: 2013Q1

REPORT INFORMATION
  Report Type: Report from Study
  Country: US (occurrence: US)
  Receive Date: 20130319
  Receipt Date: 20130319
  Transmission Date: 20140127
  Serious: Yes (Hospitalization, Other)
  Sender: FDA-Public Use
  Company Number: US-US-EMD SERONO, INC.-7199564

PATIENT
  Sex: Male

DRUGS (4)
  1. REBIF [Suspect]
     Indication: MULTIPLE SCLEROSIS
     Route: 058
     Dates: start: 20080729
  2. OXYBUTYNIN [Concomitant]
     Indication: BLADDER DISORDER
     Dates: start: 2005
  3. THORAZINE [Concomitant]
     Indication: HICCUPS
     Dates: start: 2005
  4. LEXAPRO [Concomitant]
     Indication: DEPRESSION
     Dates: start: 2007

REACTIONS (8)
  - Bedridden [Not Recovered/Not Resolved]
  - Confusional state [Recovered/Resolved]
  - Feeding disorder [Unknown]
  - Functional gastrointestinal disorder [Unknown]
  - Pain [Unknown]
  - Pyrexia [Recovered/Resolved]
  - Multiple sclerosis [Unknown]
  - Influenza [Unknown]
